FAERS Safety Report 17706666 (Version 2)
Quarter: 2020Q2

REPORT INFORMATION
  Report Type: Spontaneous
  Country: DK (occurrence: DK)
  Receive Date: 20200424
  Receipt Date: 20200513
  Transmission Date: 20200714
  Serious: Yes (Hospitalization)
  Sender: FDA-Public Use
  Company Number: DK-AMGEN-DNKSP2020031640

PATIENT
  Age: 61 Year
  Sex: Female
  Weight: 49 kg

DRUGS (6)
  1. POTASSIUM [Concomitant]
     Active Substance: POTASSIUM
  2. VITAMINE [Concomitant]
  3. ZOK-ZID [Concomitant]
  4. LOMIR [Concomitant]
  5. XGEVA [Suspect]
     Active Substance: DENOSUMAB
     Indication: HYPERCALCAEMIA
     Dosage: 120 MILLIGRAM, Q4WK
     Route: 058
     Dates: start: 20191205, end: 20191205
  6. SODIUM [Concomitant]
     Active Substance: SODIUM

REACTIONS (9)
  - Calcium ionised abnormal [Recovered/Resolved]
  - Muscle spasms [Unknown]
  - General physical health deterioration [Recovered/Resolved]
  - Vomiting [Unknown]
  - Fatigue [Recovered/Resolved]
  - Blood electrolytes abnormal [Recovered/Resolved]
  - Nausea [Unknown]
  - Blood sodium abnormal [Unknown]
  - Tremor [Recovered/Resolved]

NARRATIVE: CASE EVENT DATE: 20191208
